FAERS Safety Report 5062271-0 (Version None)
Quarter: 2006Q3

REPORT INFORMATION
  Report Type: 
  Country: None (occurrence: None)
  Receive Date: 20060721
  Receipt Date: 20060710
  Transmission Date: 20061208
  Serious: Yes (Other)
  Sender: FDA-Public Use
  Company Number: 2006073764

PATIENT
  Age: 16 Year
  Sex: Female

DRUGS (5)
  1. CLINDAMYCIN HCL [Suspect]
     Indication: ANTIBIOTIC PROPHYLAXIS
     Dosage: 450 MG (150 MG, 3 IN 1 D) ORAL
     Route: 048
     Dates: start: 20060602
  2. CEFTRIAXONE [Concomitant]
  3. SULBACTAM [Concomitant]
  4. B COMPLEX (NICOTINAMIDE, PYRIDOXINE HYDROCHLORIDE, RIBOFLAVIN, THIAMIN [Concomitant]
  5. TREATMENT FOR EPILEPSY (ANTIEPILEPTICS) [Concomitant]

REACTIONS (2)
  - DRUG HYPERSENSITIVITY [None]
  - TREMOR [None]
